FAERS Safety Report 19881889 (Version 2)
Quarter: 2022Q1

REPORT INFORMATION
  Report Type: Spontaneous
  Country: DO (occurrence: DO)
  Receive Date: 20210924
  Receipt Date: 20220314
  Transmission Date: 20220423
  Serious: Yes (Other)
  Sender: FDA-Public Use
  Company Number: DO-PFIZER INC-202101223884

PATIENT
  Age: 78 Year
  Sex: Female

DRUGS (1)
  1. NORVASC [Suspect]
     Active Substance: AMLODIPINE BESYLATE
     Dosage: 1 DF, DAILY
     Route: 048

REACTIONS (4)
  - Neoplasm malignant [Unknown]
  - Gait inability [Unknown]
  - Feeling abnormal [Unknown]
  - Cardiac disorder [Unknown]
